FAERS Safety Report 10565232 (Version 1)
Quarter: 2014Q4

REPORT INFORMATION
  Report Type: Spontaneous
  Country: CA (occurrence: None)
  Receive Date: 20141103
  Receipt Date: 20141103
  Transmission Date: 20150529
  Serious: Yes (Death, Other)
  Sender: FDA-Public Use
  Company Number: 2014CA009247

PATIENT
  Age: 74 Year
  Sex: Male
  Weight: 89.8 kg

DRUGS (10)
  1. CASODEX [Suspect]
     Active Substance: BICALUTAMIDE
  2. GLICLAZIDE [Concomitant]
     Active Substance: GLICLAZIDE
  3. ULORIC [Concomitant]
     Active Substance: FEBUXOSTAT
  4. DOCUSATE SODIUM. [Concomitant]
     Active Substance: DOCUSATE SODIUM
  5. FLUTAMIDE. [Concomitant]
     Active Substance: FLUTAMIDE
  6. ASA [Concomitant]
     Active Substance: ASPIRIN
  7. LUPRON DEPOT [Suspect]
     Active Substance: LEUPROLIDE ACETATE
     Dosage: 30MG, ONCE EVERY 4 MONTHS, INTRAMUSCULAR
  8. METOPROLOL [Concomitant]
     Active Substance: METOPROLOL
  9. ELIGARD [Suspect]
     Active Substance: LEUPROLIDE ACETATE
     Indication: PRODUCT USED FOR UNKNOWN INDICATION
     Dosage: UNKNOWN
  10. TAMSULOSIN [Concomitant]
     Active Substance: TAMSULOSIN

REACTIONS (27)
  - Confusional state [None]
  - Intervertebral disc degeneration [None]
  - Mass [None]
  - Urinary tract infection [None]
  - Lethargy [None]
  - Drug intolerance [None]
  - Drug resistance [None]
  - Hypercalcaemia [None]
  - Hypersomnia [None]
  - Spinal osteoarthritis [None]
  - Skin lesion [None]
  - Malaise [None]
  - Back pain [None]
  - Metastases to spine [None]
  - Exostosis [None]
  - Arthralgia [None]
  - Prostate cancer metastatic [None]
  - Pathological fracture [None]
  - Bone lesion [None]
  - Bladder neck obstruction [None]
  - Metastases to lung [None]
  - Tumour invasion [None]
  - Renal failure [None]
  - Device related infection [None]
  - Osteoarthritis [None]
  - Purulent discharge [None]
  - Urethral stenosis [None]
